APPROVED DRUG PRODUCT: NITROGLYCERIN
Active Ingredient: NITROGLYCERIN
Strength: 0.4MG/SPRAY
Dosage Form/Route: SPRAY, METERED;SUBLINGUAL
Application: A091496 | Product #001 | TE Code: AB
Applicant: PADAGIS ISRAEL PHARMACEUTICALS LTD
Approved: Sep 20, 2013 | RLD: No | RS: No | Type: RX